FAERS Safety Report 9663752 (Version 1)
Quarter: 2013Q4

REPORT INFORMATION
  Report Type: Report from Study
  Country: MX (occurrence: MX)
  Receive Date: 20131101
  Receipt Date: 20131101
  Transmission Date: 20140711
  Serious: Yes (Other)
  Sender: FDA-Public Use
  Company Number: PHHY2013MX123617

PATIENT
  Age: 52 Year
  Sex: Female

DRUGS (4)
  1. CO-DIOVAN [Suspect]
     Indication: HYPERTENSION
     Dosage: 1.5 DF, (320/12.5 MG) DAILY
     Route: 048
     Dates: start: 20131023
  2. LIBERTRIM//TRIMEBUTINE [Concomitant]
     Dosage: 2 DF, DAILY
     Route: 048
     Dates: start: 20131023
  3. CIPROXINA [Concomitant]
     Dosage: 2 DF, DAILY
     Route: 048
     Dates: start: 20131023
  4. GLIBENCLAMIDE [Concomitant]
     Dosage: 2 DF, DAILY
     Route: 048
     Dates: start: 20131023

REACTIONS (3)
  - Diabetes mellitus [Not Recovered/Not Resolved]
  - Back pain [Not Recovered/Not Resolved]
  - Wrong technique in drug usage process [Not Recovered/Not Resolved]
